FAERS Safety Report 23240559 (Version 1)
Quarter: 2023Q4

REPORT INFORMATION
  Report Type: Spontaneous
  Country: FR (occurrence: FR)
  Receive Date: 20231129
  Receipt Date: 20231129
  Transmission Date: 20240110
  Serious: Yes (Death, Hospitalization, Other)
  Sender: FDA-Public Use
  Company Number: FR-AMGEN-FRASP2023209218

PATIENT

DRUGS (1)
  1. CARFILZOMIB [Suspect]
     Active Substance: CARFILZOMIB
     Indication: Product used for unknown indication
     Dosage: UNK
     Route: 065

REACTIONS (11)
  - Death [Fatal]
  - Thrombotic microangiopathy [Unknown]
  - Septic shock [Fatal]
  - COVID-19 pneumonia [Fatal]
  - Neoplasm malignant [Fatal]
  - Pulmonary embolism [Fatal]
  - Renal injury [Unknown]
  - Thrombotic thrombocytopenic purpura [Unknown]
  - Cardiac disorder [Unknown]
  - Neurological symptom [Unknown]
  - Hypotension [Unknown]
